FAERS Safety Report 16432723 (Version 2)
Quarter: 2019Q3

REPORT INFORMATION
  Report Type: Report from Study
  Country: US (occurrence: US)
  Receive Date: 20190614
  Receipt Date: 20190726
  Transmission Date: 20191004
  Serious: Yes (Death, Hospitalization, Other)
  Sender: FDA-Public Use
  Company Number: US-TAIHO ONCOLOGY  INC-EU-2019-01952

PATIENT
  Age: 66 Year
  Sex: Male

DRUGS (11)
  1. LONSURF [Suspect]
     Active Substance: TIPIRACIL HYDROCHLORIDE\TRIFLURIDINE
     Indication: COLORECTAL CANCER METASTATIC
     Dosage: COMPLETED CYCLE 1
     Route: 048
     Dates: start: 20190422, end: 201905
  2. TYLENOL [Concomitant]
     Active Substance: ACETAMINOPHEN
     Dosage: 500MG Q4H
     Route: 048
  3. XARELTO [Concomitant]
     Active Substance: RIVAROXABAN
     Dosage: 10MG/QPM
     Route: 048
  4. LONSURF [Suspect]
     Active Substance: TIPIRACIL HYDROCHLORIDE\TRIFLURIDINE
     Indication: METASTASES TO LIVER
  5. BENTYL [Concomitant]
     Active Substance: DICYCLOMINE HYDROCHLORIDE
     Dosage: 10MG QID
     Route: 048
  6. LANTUS SOLOSTAR U-100 INSULIN [Concomitant]
     Dosage: 100 UNIT/ML, 6 UNITS/QHS
     Route: 058
  7. ALDACTONE [Concomitant]
     Active Substance: SPIRONOLACTONE
     Dosage: 50MG/QD
     Route: 048
  8. LOMOTIL [Concomitant]
     Active Substance: ATROPINE SULFATE\DIPHENOXYLATE HYDROCHLORIDE
     Indication: DIARRHOEA
     Dosage: FORM STRENGTH: 2.5-0.25MG, 2TABS QID
     Route: 048
  9. LASIX [Concomitant]
     Active Substance: FUROSEMIDE
     Dosage: 20MG/QD
     Route: 048
  10. NEURONTIN [Concomitant]
     Active Substance: GABAPENTIN
     Dosage: 600MG/TID
     Route: 048
  11. ANUSOL-HC [Concomitant]
     Dosage: 25MG/BID
     Route: 054

REACTIONS (24)
  - Ascites [Unknown]
  - Electrolyte imbalance [Unknown]
  - Muscular weakness [Unknown]
  - Failure to thrive [Unknown]
  - Encephalopathy [Not Recovered/Not Resolved]
  - Cachexia [Unknown]
  - Somnolence [Unknown]
  - Pain [Unknown]
  - Malaise [Unknown]
  - Hepatic failure [Fatal]
  - Sepsis [Unknown]
  - Disease progression [Fatal]
  - Hypophagia [Unknown]
  - Hyponatraemia [Unknown]
  - Dysphagia [Unknown]
  - Abdominal distension [Unknown]
  - Dysuria [Unknown]
  - Facial wasting [Unknown]
  - Nausea [Unknown]
  - Performance status decreased [Not Recovered/Not Resolved]
  - Hypotension [Unknown]
  - Peritonitis bacterial [Unknown]
  - Agitation [Unknown]
  - Respiratory distress [Unknown]

NARRATIVE: CASE EVENT DATE: 2019
